FAERS Safety Report 20657448 (Version 1)
Quarter: 2022Q1

REPORT INFORMATION
  Report Type: Spontaneous
  Country: US (occurrence: US)
  Receive Date: 20220331
  Receipt Date: 20220331
  Transmission Date: 20220423
  Serious: Yes (Other)
  Sender: FDA-Public Use
  Company Number: US-NOVARTISTESTPH-NVSC2022US070610

PATIENT
  Sex: Male

DRUGS (7)
  1. PREDNISONE [Suspect]
     Active Substance: PREDNISONE
     Indication: Prostate cancer metastatic
     Dosage: UNK
     Route: 065
     Dates: start: 202001, end: 202006
  2. PREDNISONE [Suspect]
     Active Substance: PREDNISONE
     Dosage: UNK
     Route: 065
     Dates: start: 202102, end: 202105
  3. ABIRATERONE [Suspect]
     Active Substance: ABIRATERONE
     Indication: Prostate cancer metastatic
     Dosage: UNK
     Route: 065
     Dates: start: 202001, end: 202006
  4. ABIRATERONE [Suspect]
     Active Substance: ABIRATERONE
     Dosage: UNK
     Route: 065
     Dates: start: 202102, end: 202105
  5. APALUTAMIDE [Suspect]
     Active Substance: APALUTAMIDE
     Indication: Prostate cancer metastatic
     Dosage: UNK
     Route: 065
     Dates: start: 202009, end: 202102
  6. ENZALUTAMIDE [Suspect]
     Active Substance: ENZALUTAMIDE
     Indication: Prostate cancer metastatic
     Dosage: UNK
     Route: 065
     Dates: start: 202102, end: 202103
  7. RADIUM [Suspect]
     Active Substance: RADIUM
     Indication: Prostate cancer metastatic
     Dosage: UNK (223)
     Route: 065
     Dates: start: 202107, end: 202110

REACTIONS (3)
  - Metastases to bone [Unknown]
  - Hormone-refractory prostate cancer [Unknown]
  - Malignant neoplasm progression [Unknown]
